FAERS Safety Report 7426733-0 (Version None)
Quarter: 2011Q2

REPORT INFORMATION
  Report Type: 
  Country: None (occurrence: None)
  Receive Date: 20110420
  Receipt Date: 20110414
  Transmission Date: 20111010
  Serious: Yes (Death, Other)
  Sender: FDA-Public Use
  Company Number: US-ELI_LILLY_AND_COMPANY-US201102007583

PATIENT
  Sex: Male

DRUGS (15)
  1. VIT B12 [Concomitant]
     Dosage: 1000 MG, UNK
     Route: 030
     Dates: start: 20101201
  2. ONDANSETRON [Concomitant]
     Dosage: 8 MG, UNK
     Route: 048
  3. ROXICODONE [Concomitant]
     Route: 048
  4. DITROPAN [Concomitant]
     Dosage: 5 MG, UNK
     Route: 048
  5. FERROUS SULFATE TAB [Concomitant]
     Route: 048
  6. NORCO [Concomitant]
     Route: 048
  7. OXYBUTYNIN CHLORIDE [Concomitant]
     Route: 048
  8. GEMZAR [Suspect]
     Dosage: UNK
  9. DEXAMETHASONE [Concomitant]
     Dosage: 4 MG, OTHER
  10. ATENOLOL [Concomitant]
     Dosage: 50 MG, UNK
     Route: 048
  11. CORTICOSTEROIDS [Concomitant]
     Dosage: 4 MG, UNK
     Route: 048
     Dates: start: 20101206
  12. SENOKOT [Concomitant]
     Dosage: 50 MG, BID
  13. ALIMTA [Suspect]
     Dosage: 780 MG, UNK
     Dates: start: 20101207, end: 20101228
  14. FOLIC ACID [Concomitant]
     Dosage: 1 MG, UNK
     Route: 048
     Dates: start: 20101201
  15. MORPHINE [Concomitant]
     Dosage: 60 MG, UNK
     Route: 048

REACTIONS (6)
  - ANAEMIA [None]
  - GENERAL PHYSICAL HEALTH DETERIORATION [None]
  - NAUSEA [None]
  - NEOPLASM MALIGNANT [None]
  - DECREASED APPETITE [None]
  - UROSEPSIS [None]
